FAERS Safety Report 9148318 (Version 1)
Quarter: 2013Q1

REPORT INFORMATION
  Report Type: Spontaneous
  Country: US (occurrence: None)
  Receive Date: 20130228
  Receipt Date: 20130228
  Transmission Date: 20140127
  Serious: Yes (Life-Threatening)
  Sender: FDA-Public Use
  Company Number: None

PATIENT
  Age: 66 Year
  Sex: Female
  Weight: 77.11 kg

DRUGS (2)
  1. SIMVASTATIN [Suspect]
     Indication: LOW DENSITY LIPOPROTEIN INCREASED
     Route: 048
     Dates: start: 20130115, end: 20130223
  2. COSAAR [Suspect]
     Indication: BLOOD PRESSURE SYSTOLIC INCREASED
     Route: 048
     Dates: start: 20130115, end: 20130223

REACTIONS (5)
  - Arthralgia [None]
  - Myalgia [None]
  - Fatigue [None]
  - Angioedema [None]
  - Fluid retention [None]
